FAERS Safety Report 9841164 (Version 3)
Quarter: 2014Q1

REPORT INFORMATION
  Report Type: Spontaneous
  Country: ES (occurrence: ES)
  Receive Date: 20140124
  Receipt Date: 20140220
  Transmission Date: 20141002
  Serious: No
  Sender: FDA-Public Use
  Company Number: ES-009507513-1401ESP007471

PATIENT
  Age: 70 Year
  Sex: Male

DRUGS (1)
  1. ASMANEX TWISTHALER [Suspect]
     Indication: PRODUCT USED FOR UNKNOWN INDICATION
     Dosage: UNK
     Route: 045

REACTIONS (4)
  - Drug dose omission [Unknown]
  - Product container issue [Unknown]
  - Incorrect route of drug administration [Unknown]
  - Drug dose omission [Recovered/Resolved]
